APPROVED DRUG PRODUCT: AMMONIUM CHLORIDE 2.14%
Active Ingredient: AMMONIUM CHLORIDE
Strength: 40MEQ/100ML
Dosage Form/Route: INJECTABLE;INJECTION
Application: A085734 | Product #001
Applicant: B BRAUN MEDICAL INC
Approved: Approved Prior to Jan 1, 1982 | RLD: No | RS: No | Type: DISCN